FAERS Safety Report 4377095-7 (Version None)
Quarter: 2004Q2

REPORT INFORMATION
  Report Type: 
  Country: None (occurrence: None)
  Receive Date: 20040615
  Receipt Date: 20040513
  Transmission Date: 20050107
  Serious: Yes (Hospitalization, Disabling, Other)
  Sender: FDA-Public Use
  Company Number: 200415068GDDC

PATIENT
  Age: 70 Year
  Sex: Male

DRUGS (3)
  1. ARAVA [Suspect]
     Indication: RHEUMATOID ARTHRITIS
     Route: 048
     Dates: start: 20031210, end: 20040223
  2. METHOTREXATE [Concomitant]
     Dosage: DOSE: UNK
  3. PREDNISOLONE [Concomitant]
     Dosage: DOSE: UNK

REACTIONS (4)
  - DEHYDRATION [None]
  - DIARRHOEA [None]
  - HOARSENESS [None]
  - RENAL IMPAIRMENT [None]
